FAERS Safety Report 8145454-2 (Version None)
Quarter: 2012Q1

REPORT INFORMATION
  Report Type: 
  Country: None (occurrence: None)
  Receive Date: 20120217
  Receipt Date: 20120206
  Transmission Date: 20120608
  Serious: Yes (Hospitalization)
  Sender: FDA-Public Use
  Company Number: DE-UCBSA-050691

PATIENT
  Sex: Male

DRUGS (13)
  1. METHOTREXATE [Concomitant]
     Route: 048
     Dates: start: 20081201, end: 20090901
  2. LEF [Concomitant]
     Dosage: 20 (UNSPECIFIED)
  3. LEF [Concomitant]
     Dates: start: 20090301, end: 20090901
  4. RANITIDINE HCL [Concomitant]
     Dosage: 150
  5. CIMZIA [Suspect]
     Indication: RHEUMATOID ARTHRITIS
     Dosage: 400 MG
     Route: 058
     Dates: start: 20110701, end: 20110818
  6. PREDNISOLONE [Suspect]
     Dosage: 10-0-5
  7. METHOTREXATE [Concomitant]
     Dosage: 15, 0 (UNSPECIFIED)
     Route: 048
  8. DICLOFENAC [Concomitant]
     Dosage: 75
     Dates: start: 20081101
  9. URSO FALK [Concomitant]
     Dates: start: 20081201
  10. INSULIN B.BRAUN [Concomitant]
     Indication: DIABETES MELLITUS
     Dosage: 14-18 IU PRE-PRANDIAL
  11. PREDNISOLONE [Suspect]
     Dosage: 10
     Dates: start: 20081001
  12. TRAMADOL HCL [Concomitant]
     Dates: start: 20090101
  13. LANTUS [Concomitant]
     Indication: DIABETES MELLITUS
     Dosage: 24 IU LATE EVENINGS

REACTIONS (1)
  - DEEP VEIN THROMBOSIS [None]
